FAERS Safety Report 9681764 (Version 1)
Quarter: 2013Q4

REPORT INFORMATION
  Report Type: Spontaneous
  Country: BR (occurrence: BR)
  Receive Date: 20131111
  Receipt Date: 20131111
  Transmission Date: 20140711
  Serious: Yes (Other)
  Sender: FDA-Public Use
  Company Number: BR-BAYER-2013-133313

PATIENT
  Sex: Female

DRUGS (2)
  1. LEVONORGESTREL [Suspect]
     Dosage: 20 MCG/DL, CONT
     Route: 015
  2. ESTRADIOL [Suspect]
     Dosage: 1 MG, QD

REACTIONS (1)
  - Breast cancer [None]
